FAERS Safety Report 5273636-6 (Version None)
Quarter: 2007Q1

REPORT INFORMATION
  Report Type: 
  Country: None (occurrence: None)
  Receive Date: 20070323
  Receipt Date: 20060621
  Transmission Date: 20070707
  Serious: No
  Sender: FDA-Public Use
  Company Number: US-GLAXOSMITHKLINE-A0603387A

PATIENT
  Age: 71 Year
  Sex: Female
  Weight: 45.5 kg

DRUGS (6)
  1. LEUKERAN [Suspect]
     Indication: NON-HODGKIN'S LYMPHOMA
     Dosage: 20MG CYCLIC
     Route: 048
     Dates: start: 20060401, end: 20060401
  2. LIPITOR [Concomitant]
     Dosage: 20MG PER DAY
     Route: 048
  3. FOSAMAX [Concomitant]
     Dosage: 70MG WEEKLY
     Route: 048
  4. PREDNISONE [Concomitant]
     Dosage: 5MG CYCLIC
     Route: 048
  5. MULTIPLE VITAMIN [Concomitant]
  6. ROGAINE [Concomitant]

REACTIONS (1)
  - ALOPECIA [None]
